FAERS Safety Report 23370255 (Version 4)
Quarter: 2024Q1

REPORT INFORMATION
  Report Type: Spontaneous
  Country: ES (occurrence: ES)
  Receive Date: 20240105
  Receipt Date: 20240327
  Transmission Date: 20240409
  Serious: Yes (Life-Threatening, Hospitalization, Disabling, Other)
  Sender: FDA-Public Use
  Company Number: ES-ORGANON-O2401ESP000219

PATIENT
  Age: 73 Year
  Sex: Male
  Weight: 65 kg

DRUGS (1)
  1. SINEMET [Suspect]
     Active Substance: CARBIDOPA\LEVODOPA
     Indication: Parkinson^s disease
     Dosage: THREE DAILY DOSES, ON BREAKFAST, LUNCH AND DINNER (60 TABLETS)
     Route: 048
     Dates: start: 20230621

REACTIONS (19)
  - Nausea [Recovered/Resolved]
  - Fatigue [Recovered/Resolved]
  - Toxic anterior segment syndrome [Not Recovered/Not Resolved]
  - Decreased appetite [Not Recovered/Not Resolved]
  - Weight decreased [Recovered/Resolved]
  - Depression [Not Recovered/Not Resolved]
  - Anxiety [Not Recovered/Not Resolved]
  - Agitation [Recovered/Resolved]
  - Pupil fixed [Recovered/Resolved]
  - Dysgeusia [Recovered/Resolved]
  - Dizziness postural [Recovered/Resolved]
  - Vision blurred [Recovered/Resolved]
  - Heart rate irregular [Recovered/Resolved]
  - Palpitations [Not Recovered/Not Resolved]
  - Constipation [Recovered/Resolved]
  - Dry mouth [Recovered/Resolved]
  - Urinary incontinence [Recovered/Resolved]
  - Fatigue [Recovered/Resolved]
  - Toxicity to various agents [Unknown]

NARRATIVE: CASE EVENT DATE: 20230701
